FAERS Safety Report 4555222-6 (Version None)
Quarter: 2004Q4

REPORT INFORMATION
  Report Type: 
  Country: None (occurrence: None)
  Receive Date: 20041217
  Receipt Date: 20040830
  Transmission Date: 20050328
  Serious: No
  Sender: FDA-Public Use
  Company Number: 2004-BP-07465BP

PATIENT
  Age: 67 Year
  Sex: Female

DRUGS (9)
  1. SPIRIVA [Suspect]
     Indication: CHRONIC OBSTRUCTIVE AIRWAYS DISEASE
     Dosage: 18 MCG (18 MCG), IH
     Route: 055
     Dates: start: 20040812, end: 20040827
  2. ALBUTEROL [Concomitant]
  3. DUONEB [Concomitant]
  4. FLOVENT [Concomitant]
  5. OXYGEN (OXYGEN) [Concomitant]
  6. THEOPHYLLINE [Concomitant]
  7. GLUCOPHAGE [Concomitant]
  8. EVISTA [Concomitant]
  9. IMITREX [Concomitant]

REACTIONS (4)
  - COUGH [None]
  - FEELING ABNORMAL [None]
  - MIGRAINE [None]
  - PRODUCTIVE COUGH [None]
